FAERS Safety Report 4811209-7 (Version None)
Quarter: 2005Q4

REPORT INFORMATION
  Report Type: 
  Country: None (occurrence: None)
  Receive Date: 20051027
  Receipt Date: 20020305
  Transmission Date: 20060501
  Serious: Yes (Death, Hospitalization)
  Sender: FDA-Public Use
  Company Number: GB-SOLVAY-00205003396

PATIENT
  Age: 30623 Day
  Sex: Female
  Weight: 59 kg

DRUGS (9)
  1. SIMVASTATIN [Concomitant]
     Indication: ILL-DEFINED DISORDER
     Dosage: DAILY DOSE:  UNKNOWN
     Route: 048
     Dates: start: 20030906, end: 20030907
  2. PERINDOPRIL [Suspect]
     Indication: CARDIAC FAILURE CONGESTIVE
     Dosage: DAILY DOSE: 4 MILLIGRAM(S)
     Route: 048
     Dates: start: 20010822, end: 20030906
  3. ASPIRIN [Concomitant]
     Indication: ILL-DEFINED DISORDER
     Dosage: DAILY DOSE:  UNKNOWN
     Route: 048
     Dates: start: 20030906, end: 20030907
  4. BENDROFLUAZIDE [Concomitant]
     Indication: ILL-DEFINED DISORDER
     Dosage: DAILY DOSE:  UNKNOWN
     Route: 048
     Dates: start: 20030906, end: 20030906
  5. AMLODIPINE [Concomitant]
     Indication: ILL-DEFINED DISORDER
     Dosage: DAILY DOSE:  UNKNOWN
     Route: 048
     Dates: start: 20030906, end: 20030907
  6. DIPYRIDAMOLE [Concomitant]
     Indication: ILL-DEFINED DISORDER
     Dosage: DAILY DOSE:  UNKNOWN
     Route: 048
     Dates: start: 20030906, end: 20030906
  7. METFORMIN HCL [Concomitant]
     Indication: ILL-DEFINED DISORDER
     Dosage: DAILY DOSE:  UNKNOWN
     Route: 048
     Dates: start: 20030906, end: 20030906
  8. ACTRAPID HUMAN [Concomitant]
     Indication: ILL-DEFINED DISORDER
     Dosage: DAILY DOSE:  UNKNOWN
     Route: 065
     Dates: start: 20030906, end: 20030907
  9. GLICLAZIDE [Concomitant]
     Indication: ILL-DEFINED DISORDER
     Dosage: DAILY DOSE: 80 MILLIGRAM(S)
     Route: 048
     Dates: start: 20030906, end: 20030907

REACTIONS (8)
  - ACUTE MYOCARDIAL INFARCTION [None]
  - ATRIAL FIBRILLATION [None]
  - CARDIAC FAILURE [None]
  - CEREBRAL INFARCTION [None]
  - HYPOTENSION [None]
  - LOWER RESPIRATORY TRACT INFECTION [None]
  - MYOCARDIAL ISCHAEMIA [None]
  - RENAL FAILURE [None]
